FAERS Safety Report 7476685-2 (Version None)
Quarter: 2011Q2

REPORT INFORMATION
  Report Type: 
  Country: None (occurrence: None)
  Receive Date: 20110512
  Receipt Date: 20110429
  Transmission Date: 20111010
  Serious: Yes (Other)
  Sender: FDA-Public Use
  Company Number: PHHY2011BR36909

PATIENT
  Sex: Male
  Weight: 60 kg

DRUGS (4)
  1. EXELON [Suspect]
     Indication: DEMENTIA
     Dosage: UNK
     Route: 048
     Dates: start: 20101101
  2. DEXAMETHASONE [Concomitant]
     Indication: PROSTATE CANCER
     Dosage: 1 DF, DAILY
     Route: 048
  3. EXELON [Suspect]
     Indication: DEMENTIA
     Dosage: 9MG/5CM2 30 SIST
     Route: 062
     Dates: start: 20110401, end: 20110428
  4. RANITIDINE [Concomitant]
     Indication: ABDOMINAL DISCOMFORT
     Dosage: 1 DF, DAILY
     Route: 048

REACTIONS (6)
  - MEMORY IMPAIRMENT [None]
  - EATING DISORDER [None]
  - BLOOD PRESSURE DECREASED [None]
  - ALTERED STATE OF CONSCIOUSNESS [None]
  - ABNORMAL BEHAVIOUR [None]
  - HEAD DISCOMFORT [None]
